FAERS Safety Report 8967751 (Version 3)
Quarter: 2013Q1

REPORT INFORMATION
  Report Type: Spontaneous
  Country: US (occurrence: None)
  Receive Date: 20121207
  Receipt Date: 20130111
  Transmission Date: 20140127
  Serious: Yes (Death, Hospitalization)
  Sender: FDA-Public Use
  Company Number: 2012-1433

PATIENT
  Age: 72 Year
  Sex: Female

DRUGS (2)
  1. KYPROLIS [Suspect]
     Indication: PLASMA CELL MYELOMA
     Dates: start: 20121112, end: 20121113
  2. DEXAMETHASONE (DEXAMETHASONE) (DEXAMETHASONE) [Concomitant]

REACTIONS (5)
  - Pulmonary oedema [None]
  - Pneumonitis [None]
  - Pulmonary oedema [None]
  - Capillary leak syndrome [None]
  - Renal failure [None]
